FAERS Safety Report 10567546 (Version 1)
Quarter: 2014Q4

REPORT INFORMATION
  Report Type: Spontaneous
  Country: US (occurrence: US)
  Receive Date: 20141106
  Receipt Date: 20141106
  Transmission Date: 20150529
  Serious: No
  Sender: FDA-Public Use
  Company Number: US-BIOGENIDEC-2014BI115816

PATIENT
  Age: 47 Year
  Sex: Female

DRUGS (1)
  1. TYSABRI [Suspect]
     Active Substance: NATALIZUMAB
     Indication: MULTIPLE SCLEROSIS
     Route: 042
     Dates: start: 20140228

REACTIONS (17)
  - Panic reaction [Unknown]
  - Back pain [Unknown]
  - Fear [Unknown]
  - Mental impairment [Unknown]
  - Kidney infection [Not Recovered/Not Resolved]
  - Pain [Not Recovered/Not Resolved]
  - Muscular weakness [Unknown]
  - Dysphemia [Unknown]
  - Malaise [Unknown]
  - Pyrexia [Unknown]
  - Urine analysis abnormal [Unknown]
  - Balance disorder [Unknown]
  - Peroneal nerve palsy [Unknown]
  - Gait disturbance [Not Recovered/Not Resolved]
  - Muscle spasms [Not Recovered/Not Resolved]
  - Urinary tract infection [Recovered/Resolved]
  - White blood cell count increased [Unknown]

NARRATIVE: CASE EVENT DATE: 201409
